FAERS Safety Report 8634620 (Version 2)
Quarter: 2014Q1

REPORT INFORMATION
  Report Type: Spontaneous
  Country: US (occurrence: US)
  Receive Date: 20120626
  Receipt Date: 20140110
  Transmission Date: 20141002
  Serious: No
  Sender: FDA-Public Use
  Company Number: US-ASTRAZENECA-2012SE40051

PATIENT
  Age: 24 Year
  Sex: Female

DRUGS (28)
  1. TOPROL XL [Suspect]
     Route: 048
  2. ZOMIG [Suspect]
     Route: 048
  3. ADDERALL [Concomitant]
     Indication: ATTENTION DEFICIT/HYPERACTIVITY DISORDER
  4. LEVOXYL [Concomitant]
     Indication: HYPOTHYROIDISM
  5. METOPROLOL [Concomitant]
     Indication: HYPERTENSION
  6. CALCITRIOL [Concomitant]
     Indication: HYPOCALCAEMIA
  7. GLUCOPHAGE [Concomitant]
     Indication: BLOOD INSULIN INCREASED
  8. ALBUTEROL [Concomitant]
     Indication: ASTHMA
  9. SINGULAIR [Concomitant]
     Indication: ASTHMA
  10. BYETTA [Concomitant]
     Indication: BLOOD INSULIN INCREASED
  11. FLUOXETINE [Concomitant]
  12. OTC CLARITAN [Concomitant]
     Indication: MULTIPLE ALLERGIES
  13. VIT D [Concomitant]
  14. RELPAX [Concomitant]
     Indication: MIGRAINE
  15. DULERA [Concomitant]
     Indication: ASTHMA
  16. LACTAID [Concomitant]
  17. MULTI VITAMIN [Concomitant]
  18. SUPER VIT B COMPLEX [Concomitant]
  19. OLUX-E [Concomitant]
     Indication: PSORIASIS
  20. CICLOPIROX [Concomitant]
     Indication: PSORIASIS
  21. ECHNICEA [Concomitant]
  22. OMNICEF [Concomitant]
  23. DESONIDE [Concomitant]
  24. NASONEX [Concomitant]
  25. AIRBORNE [Concomitant]
  26. CLOBETASOL PROPIONATE GEL [Concomitant]
  27. ACIDOPHILUS [Concomitant]
  28. CLOBETASOL PROPIONATE CREAM [Concomitant]

REACTIONS (3)
  - Hearing impaired [Unknown]
  - Urticaria [Unknown]
  - Intentional drug misuse [Not Recovered/Not Resolved]
